FAERS Safety Report 16173043 (Version 2)
Quarter: 2019Q2

REPORT INFORMATION
  Report Type: Report from Study
  Country: None (occurrence: CA)
  Receive Date: 20190409
  Receipt Date: 20190521
  Transmission Date: 20190711
  Serious: Yes (Hospitalization, Other)
  Sender: FDA-Public Use
  Company Number: CA-ABBVIE-19K-028-2733415-00

PATIENT
  Sex: Female

DRUGS (2)
  1. HUMIRA [Suspect]
     Active Substance: ADALIMUMAB
     Indication: RHEUMATOID ARTHRITIS
     Route: 058
  2. METHOTREXATE. [Suspect]
     Active Substance: METHOTREXATE
     Indication: PRODUCT USED FOR UNKNOWN INDICATION
     Route: 065

REACTIONS (6)
  - Pericardial effusion [Unknown]
  - Arthrodesis [Unknown]
  - Pulmonary oedema [Unknown]
  - Surgical failure [Unknown]
  - Arthralgia [Not Recovered/Not Resolved]
  - Lung infection [Unknown]

NARRATIVE: CASE EVENT DATE: 2017
